FAERS Safety Report 25364294 (Version 1)
Quarter: 2025Q2

REPORT INFORMATION
  Report Type: Spontaneous
  Country: JP (occurrence: JP)
  Receive Date: 20250527
  Receipt Date: 20250527
  Transmission Date: 20250717
  Serious: Yes (Other)
  Sender: AMGEN
  Company Number: JP-AMGEN-JPNSP2025094857

PATIENT

DRUGS (1)
  1. IMDELLTRA [Suspect]
     Active Substance: TARLATAMAB-DLLE
     Indication: Product used for unknown indication
     Route: 040
     Dates: start: 20250513, end: 202505

REACTIONS (3)
  - Metastases to liver [Unknown]
  - Metastases to central nervous system [Unknown]
  - Pyrexia [Unknown]

NARRATIVE: CASE EVENT DATE: 20250513
